FAERS Safety Report 6417248-7 (Version None)
Quarter: 2009Q4

REPORT INFORMATION
  Report Type: 
  Country: None (occurrence: None)
  Receive Date: 20091027
  Receipt Date: 20091027
  Transmission Date: 20100525
  Serious: Yes (Hospitalization)
  Sender: FDA-Public Use
  Company Number: None

PATIENT
  Age: 67 Year
  Sex: Male
  Weight: 55.8 kg

DRUGS (15)
  1. NPH INSULIN [Suspect]
     Indication: DIABETES MELLITUS
     Dosage: 15 U SQ BID
     Route: 058
  2. ASPIRIN [Concomitant]
  3. MYCOPHENOLATE MOFETIL [Concomitant]
  4. CLOPIDOGREL [Concomitant]
  5. WARFARIN SODIUM [Concomitant]
  6. FLUTICASONE [Concomitant]
  7. M.V.I. [Concomitant]
  8. PREDNISONE [Concomitant]
  9. SIMVASTATIN [Concomitant]
  10. TACROLIMUS [Concomitant]
  11. RANITIDINE [Concomitant]
  12. ISOSORBIDE [Concomitant]
  13. OMEPRAZOLE [Concomitant]
  14. SEVELAMER [Concomitant]
  15. FUROSEMIDE [Concomitant]

REACTIONS (8)
  - AGITATION [None]
  - BLOOD GLUCOSE DECREASED [None]
  - CONFUSIONAL STATE [None]
  - CREATININE RENAL CLEARANCE DECREASED [None]
  - DYSARTHRIA [None]
  - FALL [None]
  - HEAD INJURY [None]
  - HYPERHIDROSIS [None]
